FAERS Safety Report 7218201-6 (Version None)
Quarter: 2011Q1

REPORT INFORMATION
  Report Type: 
  Country: None (occurrence: None)
  Receive Date: 20110110
  Receipt Date: 20110104
  Transmission Date: 20110831
  Serious: Yes (Life-Threatening, Hospitalization)
  Sender: FDA-Public Use
  Company Number: DE-ASTRAZENECA-2011SE00428

PATIENT
  Age: 28442 Day
  Sex: Male
  Weight: 72 kg

DRUGS (8)
  1. IRESSA [Suspect]
     Indication: NON-SMALL CELL LUNG CANCER
     Route: 048
     Dates: start: 20100611, end: 20101223
  2. VERAPAMIL [Concomitant]
     Indication: ARRHYTHMIA
     Dosage: TWO TIMES A DAY
     Route: 048
  3. METOCLOPRAMIDE [Concomitant]
     Indication: NAUSEA
     Dosage: DAILY
  4. TAMSULOSIN [Concomitant]
     Indication: PROSTATIC DISORDER
     Dosage: DAILY
     Route: 048
  5. ESCITALOPRAM [Concomitant]
     Indication: ANTIDEPRESSANT THERAPY
     Dosage: DAILY
     Route: 048
  6. PREDNISOLONE [Concomitant]
     Indication: CHRONIC OBSTRUCTIVE PULMONARY DISEASE
     Dosage: DAILY
     Route: 048
  7. LASIX [Concomitant]
     Indication: DIURETIC THERAPY
     Dosage: DAILY
     Route: 048
  8. PANTOPRAZOLE [Concomitant]
     Route: 048

REACTIONS (2)
  - GENERAL PHYSICAL HEALTH DETERIORATION [None]
  - DIARRHOEA [None]
